FAERS Safety Report 6007906-0 (Version None)
Quarter: 2008Q4

REPORT INFORMATION
  Report Type: 
  Country: None (occurrence: None)
  Receive Date: 20081217
  Receipt Date: 20080711
  Transmission Date: 20090506
  Serious: No
  Sender: FDA-Public Use
  Company Number: US-ASTRAZENECA-2008UW13950

PATIENT
  Age: 55 Year
  Sex: Male
  Weight: 113.9 kg

DRUGS (6)
  1. CRESTOR [Suspect]
     Indication: BLOOD CHOLESTEROL INCREASED
     Route: 048
     Dates: start: 20080301
  2. CRESTOR [Suspect]
     Route: 048
     Dates: start: 20080701
  3. LOPID [Suspect]
     Dates: start: 20080301
  4. TRICOR [Concomitant]
  5. FISH OIL [Concomitant]
  6. QUINAPRIL [Concomitant]

REACTIONS (2)
  - ASTHENIA [None]
  - PAIN IN EXTREMITY [None]
